FAERS Safety Report 22002268 (Version 1)
Quarter: 2023Q1

REPORT INFORMATION
  Report Type: Report from Study
  Country: CO (occurrence: CO)
  Receive Date: 20230217
  Receipt Date: 20230217
  Transmission Date: 20230417
  Serious: Yes (Other)
  Sender: FDA-Public Use
  Company Number: CO-ABBVIE-4309305

PATIENT
  Sex: Male
  Weight: 78 kg

DRUGS (3)
  1. HUMIRA [Suspect]
     Active Substance: ADALIMUMAB
     Indication: Psoriasis
     Dosage: EVENT ONSET DATE FOR BACK DISORDER AND NECK DISORDER: 2020
     Route: 058
     Dates: start: 20161202, end: 20201007
  2. HUMIRA [Suspect]
     Active Substance: ADALIMUMAB
     Dosage: EVENT ONSET DATE FOR BACK DISORDER AND NECK DISORDER: 2020
     Route: 058
  3. SKYRIZI [Suspect]
     Active Substance: RISANKIZUMAB-RZAA
     Indication: Psoriasis
     Dosage: WEEK 0, WEEK 4 THEN WEEK 12 THEREAFTER?EVENT ONSET DATE FOR BACK DISORDER AND NECK DISORDER: 2020
     Route: 058
     Dates: start: 20201123

REACTIONS (5)
  - Neoplasm malignant [Not Recovered/Not Resolved]
  - Post procedural complication [Not Recovered/Not Resolved]
  - Musculoskeletal disorder [Not Recovered/Not Resolved]
  - Pruritus [Not Recovered/Not Resolved]
  - Back disorder [Not Recovered/Not Resolved]
